FAERS Safety Report 15371025 (Version 1)
Quarter: 2018Q3

REPORT INFORMATION
  Report Type: Spontaneous
  Country: AU (occurrence: AU)
  Receive Date: 20180911
  Receipt Date: 20180911
  Transmission Date: 20181010
  Serious: Yes (Other)
  Sender: FDA-Public Use
  Company Number: AU-GLAXOSMITHKLINE-AU2018GSK162115

PATIENT
  Sex: Male

DRUGS (1)
  1. TAFENOQUINE [Suspect]
     Active Substance: TAFENOQUINE
     Indication: PRODUCT USED FOR UNKNOWN INDICATION
     Dosage: UNK

REACTIONS (11)
  - Vestibular disorder [Unknown]
  - Head discomfort [Unknown]
  - Hypothalamo-pituitary disorder [Unknown]
  - Post-traumatic stress disorder [Not Recovered/Not Resolved]
  - Thyroid disorder [Unknown]
  - Deafness [Unknown]
  - Vertigo [Unknown]
  - Disturbance in attention [Not Recovered/Not Resolved]
  - Autoimmune disorder [Unknown]
  - Neurotoxicity [Unknown]
  - Tinnitus [Unknown]

NARRATIVE: CASE EVENT DATE: 2001
